FAERS Safety Report 7792568-2 (Version None)
Quarter: 2011Q4

REPORT INFORMATION
  Report Type: 
  Country: None (occurrence: None)
  Receive Date: 20111003
  Receipt Date: 20110927
  Transmission Date: 20120403
  Serious: Yes (Hospitalization)
  Sender: FDA-Public Use
  Company Number: US-ABBOTT-11P-163-0858640-00

PATIENT
  Sex: Female

DRUGS (7)
  1. ABILIFY [Concomitant]
     Indication: MENTAL DISORDER
  2. HUMIRA [Suspect]
     Indication: CROHN'S DISEASE
     Dates: start: 20110601
  3. CYPREXA [Concomitant]
     Indication: PSYCHOTIC BEHAVIOUR
  4. KLONOPIN [Concomitant]
     Indication: ANXIETY
  5. DEPAKOTE [Concomitant]
     Indication: AFFECTIVE DISORDER
  6. CELEXA [Concomitant]
     Indication: DEPRESSION
  7. THORAZINE [Concomitant]
     Indication: SCHIZOPHRENIA

REACTIONS (1)
  - MENTAL DISORDER [None]
